FAERS Safety Report 7518612-5 (Version None)
Quarter: 2011Q2

REPORT INFORMATION
  Report Type: 
  Country: None (occurrence: None)
  Receive Date: 20110602
  Receipt Date: 20110517
  Transmission Date: 20111010
  Serious: Yes (Other)
  Sender: FDA-Public Use
  Company Number: US-BAYER-2011-026079

PATIENT
  Age: 42 Year
  Sex: Female
  Weight: 90.703 kg

DRUGS (11)
  1. DARVOCET-N 50 [Concomitant]
     Dosage: 100 MG, PRN
     Route: 048
  2. AVAPRO [Concomitant]
     Dosage: 150 MG, QD
     Route: 048
  3. MECLIZINE HCL [Concomitant]
     Dosage: 25 MG, UNK
     Route: 048
  4. PHENERGAN HCL [Concomitant]
     Dosage: 25 MG, PRN
     Route: 048
  5. SINGULAIR [Concomitant]
     Dosage: 10 MG, QD
     Route: 048
  6. YAZ [Suspect]
     Indication: DYSFUNCTIONAL UTERINE BLEEDING
     Dosage: UNK
     Route: 048
  7. CLARINEX [Concomitant]
     Dosage: 5 MG, QD
     Route: 048
     Dates: start: 20071106
  8. YASMIN [Suspect]
     Indication: DYSFUNCTIONAL UTERINE BLEEDING
     Dosage: UNK
     Route: 048
     Dates: start: 20080214, end: 20080311
  9. PREMARIN [Concomitant]
  10. FLEXERIL [Concomitant]
     Dosage: 10 MG, UNK
     Route: 048
  11. LEVAQUIN [Concomitant]
     Dosage: 750 MG, QD
     Route: 048

REACTIONS (5)
  - DEEP VEIN THROMBOSIS [None]
  - AMNESIA [None]
  - QUALITY OF LIFE DECREASED [None]
  - PAIN [None]
  - MUSCLE SPASMS [None]
